FAERS Safety Report 5605009-8 (Version None)
Quarter: 2008Q1

REPORT INFORMATION
  Report Type: 
  Country: None (occurrence: None)
  Receive Date: 20080128
  Receipt Date: 20080124
  Transmission Date: 20080703
  Serious: Yes (Hospitalization)
  Sender: FDA-Public Use
  Company Number: US-RANBAXY-2007US-12080

PATIENT

DRUGS (6)
  1. CEFUROXIME AXETIL (CRYSTALLINE) [Suspect]
     Indication: PHARYNGITIS
     Dosage: 250 MG, BID
     Route: 065
     Dates: start: 20071022, end: 20071028
  2. CEFUROXIME AXETIL (CRYSTALLINE) [Suspect]
     Indication: BRONCHITIS
  3. PREDNISONE TAB [Concomitant]
     Indication: DRUG USE FOR UNKNOWN INDICATION
     Dosage: UNK
     Route: 065
  4. WARFARIN SODIUM [Concomitant]
     Indication: DRUG USE FOR UNKNOWN INDICATION
     Dosage: UNK
     Route: 065
  5. METOPROLOL TARTRATE [Concomitant]
     Indication: DRUG USE FOR UNKNOWN INDICATION
     Dosage: UNK
     Route: 065
  6. LEVOXYL [Concomitant]
     Indication: DRUG USE FOR UNKNOWN INDICATION
     Route: 065

REACTIONS (7)
  - CARDIAC FAILURE CONGESTIVE [None]
  - FACE OEDEMA [None]
  - HEADACHE [None]
  - LYMPHADENOPATHY [None]
  - PAIN IN JAW [None]
  - PHARYNGEAL OEDEMA [None]
  - SWOLLEN TONGUE [None]
